FAERS Safety Report 10534425 (Version 1)
Quarter: 2014Q4

REPORT INFORMATION
  Report Type: Spontaneous
  Country: US (occurrence: US)
  Receive Date: 20141022
  Receipt Date: 20141022
  Transmission Date: 20150529
  Serious: Yes (Other)
  Sender: FDA-Public Use
  Company Number: US-BAUSCH-SYM-2013-14310

PATIENT
  Age: 33 Year
  Sex: Female

DRUGS (1)
  1. WELLBUTRIN XL [Suspect]
     Active Substance: BUPROPION HYDROCHLORIDE
     Indication: MOOD SWINGS
     Dosage: 1 TABLET, DAILY
     Route: 048
     Dates: start: 20131206, end: 20131211

REACTIONS (6)
  - Urticaria [Unknown]
  - Anxiety [Unknown]
  - Feeling hot [Unknown]
  - Blood pressure increased [Unknown]
  - Dizziness [Unknown]
  - Muscular weakness [Unknown]

NARRATIVE: CASE EVENT DATE: 20131209
